FAERS Safety Report 18506537 (Version 1)
Quarter: 2020Q4

REPORT INFORMATION
  Report Type: Spontaneous
  Country: CN (occurrence: CN)
  Receive Date: 20201116
  Receipt Date: 20201116
  Transmission Date: 20210114
  Serious: Yes (Death)
  Sender: FDA-Public Use
  Company Number: CN-PFIZER INC-2020446212

PATIENT
  Age: 60 Year
  Sex: Female

DRUGS (1)
  1. VIZIMPRO [Suspect]
     Active Substance: DACOMITINIB
     Indication: LUNG NEOPLASM MALIGNANT
     Dosage: 30 MG, DAILY
     Route: 048
     Dates: start: 20190829

REACTIONS (3)
  - Neoplasm progression [Unknown]
  - Diarrhoea [Unknown]
  - Intestinal haemorrhage [Fatal]
